FAERS Safety Report 16650203 (Version 2)
Quarter: 2019Q3

REPORT INFORMATION
  Report Type: Report from Study
  Country: FR (occurrence: FR)
  Receive Date: 20190731
  Receipt Date: 20190807
  Transmission Date: 20191004
  Serious: Yes (Hospitalization)
  Sender: FDA-Public Use
  Company Number: FR-ROCHE-1914197

PATIENT
  Age: 50 Year
  Sex: Female

DRUGS (11)
  1. BLINDED ATEZOLIZUMAB [Suspect]
     Active Substance: ATEZOLIZUMAB
     Dosage: ADMINISTERED ON DAYS 1 AND 15 OF EACH 4-WEEK CYCLE FOR 6 CYCLES, THEN ONCE EVERY 3 WEEKS UNTIL DISEA
     Route: 042
     Dates: start: 20170327
  2. PEGYLATED LIPOSOMAL DOXORUBICIN [Suspect]
     Active Substance: DOXORUBICIN
     Indication: NEOPLASM MALIGNANT
     Dosage: ADMINISTERED FOR 6 CYCLES?MOST RECENT DOSE PRIOR TO ONSET OF APLASIA BONE MARROW: 13/DEC/2016?MOST R
     Route: 042
     Dates: start: 20161213, end: 20170320
  3. CARBOPLATIN. [Suspect]
     Active Substance: CARBOPLATIN
     Dosage: TARGET AUC = 5, ADMINISTERED FOR 6 CYCLES
     Route: 042
     Dates: start: 20170327
  4. PEGYLATED LIPOSOMAL DOXORUBICIN [Suspect]
     Active Substance: DOXORUBICIN
     Dosage: ADMINISTERED FOR 6 CYCLES
     Route: 042
     Dates: start: 20170327
  5. PARACETAMOL [Concomitant]
     Active Substance: ACETAMINOPHEN
  6. BLINDED ATEZOLIZUMAB [Suspect]
     Active Substance: ATEZOLIZUMAB
     Indication: NEOPLASM MALIGNANT
     Dosage: ADMINISTERED ON DAYS 1 AND 15 OF EACH 4-WEEK CYCLE FOR 6 CYCLES, THEN ONCE EVERY 3 WEEKS UNTIL DISEA
     Route: 042
     Dates: start: 20161213, end: 20170320
  7. BEVACIZUMAB. [Suspect]
     Active Substance: BEVACIZUMAB
     Dosage: ADMINISTERED AT 10 MG/KG ON DAYS 1 AND 15 OF EACH 4-WEEK CYCLE FOR 6 CYCLES, THEN AT 15 MG/KG EVERY
     Route: 042
     Dates: start: 20170327
  8. CARBOPLATIN. [Suspect]
     Active Substance: CARBOPLATIN
     Indication: NEOPLASM MALIGNANT
     Dosage: TARGET AUC = 5, ADMINISTERED FOR 6 CYCLES?MOST RECENT DOSE PRIOR TO ONSET OF APLASIA BONE MARROW: 13
     Route: 042
     Dates: start: 20161213, end: 20170320
  9. BEVACIZUMAB. [Suspect]
     Active Substance: BEVACIZUMAB
     Indication: NEOPLASM MALIGNANT
     Dosage: ADMINISTERED AT 10 MG/KG ON DAYS 1 AND 15 OF EACH 4-WEEK CYCLE FOR 6 CYCLES, THEN AT 15 MG/KG EVERY
     Route: 042
     Dates: start: 20161213, end: 20170320
  10. LOVENOX [Concomitant]
     Active Substance: ENOXAPARIN SODIUM
     Dosage: 4000 UNITS
     Route: 058
  11. METFORMINE [METFORMIN] [Concomitant]
     Active Substance: METFORMIN HYDROCHLORIDE
     Dosage: 850
     Route: 065

REACTIONS (2)
  - Bone marrow failure [Recovered/Resolved]
  - Pancytopenia [Recovered/Resolved]

NARRATIVE: CASE EVENT DATE: 20161227
